FAERS Safety Report 7363070-7 (Version None)
Quarter: 2011Q1

REPORT INFORMATION
  Report Type: 
  Country: None (occurrence: None)
  Receive Date: 20110321
  Receipt Date: 20110315
  Transmission Date: 20110831
  Serious: No
  Sender: FDA-Public Use
  Company Number: US-PFIZER INC-2011056801

PATIENT
  Age: 7 Year
  Sex: Female

DRUGS (4)
  1. ADVIL LIQUI-GELS [Suspect]
     Dosage: UNK
  2. TRIAMINIC [Suspect]
     Indication: COUGH
  3. TRIAMINIC [Suspect]
     Indication: RHINORRHOEA
  4. TRIAMINIC [Suspect]
     Indication: PYREXIA
     Dosage: UNK

REACTIONS (3)
  - RHINORRHOEA [None]
  - COUGH [None]
  - VOMITING [None]
